FAERS Safety Report 8096799 (Version 9)
Quarter: 2012Q4

REPORT INFORMATION
  Report Type: 
  Country: CH (occurrence: CH)
  Receive Date: 20110818
  Receipt Date: 20121214
  Transmission Date: 20130627
  Serious: Yes (Life-Threatening, Hospitalization, Other)
  Sender: FDA-Public Use
  Company Number: CH-GENZYME-CLOF-1001738

PATIENT
  Age: 40 Year
  Sex: Male
  Weight: 73 kg

DRUGS (20)
  1. EVOLTRA [Suspect]
     Indication: ACUTE MYELOID LEUKAEMIA
     Dosage: 20 mg qdx5, Cycle 1
     Route: 042
     Dates: start: 20110729, end: 20110802
  2. EVOLTRA [Suspect]
     Dosage: 19.2 mg, Cycle 2 (Day 1-6)
     Route: 042
     Dates: start: 20111008, end: 20111013
  3. EVOLTRA [Suspect]
     Dosage: Cycle 3
     Route: 065
     Dates: start: 20111221
  4. IDARUBICIN [Suspect]
     Indication: ACUTE MYELOID LEUKAEMIA
     Dosage: 23.6 mg qdx3, Cycle 1
     Route: 042
     Dates: start: 20110729, end: 20110731
  5. CYTARABINE [Suspect]
     Indication: ACUTE MYELOID LEUKAEMIA
     Dosage: 394 mg qdx7, Cycle 1
     Route: 042
     Dates: start: 20110728, end: 20110803
  6. CYTARABINE [Suspect]
     Dosage: 1920 mg BID
     Route: 042
     Dates: start: 20111008, end: 20111013
  7. AMSACRINE [Concomitant]
     Indication: ACUTE MYELOID LEUKAEMIA
     Dosage: Cycle 2: 230 mg qod on Days 3, 5 and 7
     Route: 042
     Dates: start: 20111010, end: 20111014
  8. SOL MEDROL [Concomitant]
     Indication: PROPHYLAXIS OF NAUSEA AND VOMITING
     Dosage: 125 mg, UNK
     Route: 042
     Dates: start: 20110728, end: 20110804
  9. NAVOBAN [Concomitant]
     Indication: PROPHYLAXIS OF NAUSEA AND VOMITING
     Dosage: 5 mg, UNK
     Route: 042
     Dates: start: 20110728, end: 20110804
  10. FASTURTEC [Concomitant]
     Indication: HYPERURICAEMIA
     Dosage: 7.5 mg, UNK
     Route: 065
     Dates: start: 20110728, end: 20110728
  11. ZYLORIC [Concomitant]
     Indication: HYPERURICAEMIA
     Dosage: 300 mg, UNK
     Route: 048
     Dates: start: 20110729, end: 20110803
  12. ZANTAC [Concomitant]
     Indication: PROPHYLAXIS
     Dosage: UNK
     Route: 065
  13. PARACETAMOL [Concomitant]
     Indication: WOUND COMPLICATION
     Dosage: 3000 mg, UNK
     Route: 048
     Dates: start: 201107
  14. OXYCODONE [Concomitant]
     Indication: WOUND COMPLICATION
     Dosage: Oxycodon/Naloxon 40/20 mg
     Route: 048
     Dates: start: 201108
  15. NALOXON [Concomitant]
     Indication: WOUND COMPLICATION
     Dosage: Oxycodon/Naloxon 40/20 mg
     Route: 048
     Dates: start: 201108
  16. BACTRIUM DS [Concomitant]
     Indication: PNEUMONIA
     Dosage: 160/800 mg tiw
     Route: 048
     Dates: start: 201108, end: 20111022
  17. POSACONAZOLE [Concomitant]
     Indication: ANTIFUNGAL PROPHYLAXIS
     Dosage: 20 ml, UNK
     Route: 048
     Dates: start: 201108, end: 20111004
  18. ESOMEPRAZOLE [Concomitant]
     Indication: PROPHYLAXIS
     Dosage: 40 mg, UNK
     Route: 048
     Dates: start: 201108, end: 20111002
  19. MIRTAZAPINE [Concomitant]
     Indication: AFFECTIVE DISORDER
     Dosage: 30 mg, UNK
     Route: 048
     Dates: start: 201108, end: 20111002
  20. POTASSIUM [Concomitant]
     Indication: SUPPLEMENTATION THERAPY
     Dosage: 30 mmol, UNK
     Route: 048
     Dates: start: 201107

REACTIONS (4)
  - Fasciitis [Recovered/Resolved with Sequelae]
  - Post procedural complication [Recovered/Resolved with Sequelae]
  - Pneumonia fungal [Recovered/Resolved with Sequelae]
  - Pneumonia fungal [Recovered/Resolved with Sequelae]
